FAERS Safety Report 9320641 (Version 2)
Quarter: 2013Q3

REPORT INFORMATION
  Report Type: Spontaneous
  Country: CH (occurrence: CH)
  Receive Date: 20130531
  Receipt Date: 20130715
  Transmission Date: 20140515
  Serious: Yes (Other)
  Sender: FDA-Public Use
  Company Number: CH-ROCHE-1228145

PATIENT
  Sex: Male

DRUGS (2)
  1. MABTHERA [Suspect]
     Indication: MANTLE CELL LYMPHOMA
     Route: 065
  2. BENDAMUSTINE [Concomitant]
     Indication: MANTLE CELL LYMPHOMA

REACTIONS (1)
  - Leukoencephalopathy [Not Recovered/Not Resolved]
